FAERS Safety Report 8355090-0 (Version None)
Quarter: 2012Q2

REPORT INFORMATION
  Report Type: 
  Country: None (occurrence: None)
  Receive Date: 20120511
  Receipt Date: 20120507
  Transmission Date: 20120825
  Serious: Yes (Hospitalization, Other)
  Sender: FDA-Public Use
  Company Number: CA-ABBOTT-12P-028-0928323-00

PATIENT
  Sex: Male
  Weight: 74.91 kg

DRUGS (3)
  1. METHOTREXATE [Concomitant]
     Indication: PRODUCT USED FOR UNKNOWN INDICATION
  2. HUMIRA [Suspect]
     Route: 058
  3. HUMIRA [Suspect]
     Indication: CROHN'S DISEASE
     Route: 058
     Dates: start: 20110611

REACTIONS (9)
  - APHAGIA [None]
  - ABDOMINAL PAIN [None]
  - DRUG INEFFECTIVE [None]
  - CONDITION AGGRAVATED [None]
  - GASTROINTESTINAL INFLAMMATION [None]
  - CROHN'S DISEASE [None]
  - INTESTINAL DILATATION [None]
  - INTESTINAL OBSTRUCTION [None]
  - FREQUENT BOWEL MOVEMENTS [None]
